FAERS Safety Report 4636007-9 (Version None)
Quarter: 2005Q2

REPORT INFORMATION
  Report Type: 
  Country: None (occurrence: None)
  Receive Date: 20050415
  Receipt Date: 20050318
  Transmission Date: 20051028
  Serious: No
  Sender: FDA-Public Use
  Company Number: US-SANOFI-SYNTHELABO-A03200500774

PATIENT

DRUGS (1)
  1. PLAVIX [Suspect]
     Indication: THROMBOPHLEBITIS SUPERFICIAL
     Dosage: UNK
     Route: 048
     Dates: start: 19970101

REACTIONS (2)
  - THERAPEUTIC PRODUCT INEFFECTIVE FOR UNAPPROVED INDICATION [None]
  - THROMBOPHLEBITIS SUPERFICIAL [None]
